FAERS Safety Report 20702701 (Version 1)
Quarter: 2022Q2

REPORT INFORMATION
  Report Type: Spontaneous
  Country: US (occurrence: US)
  Receive Date: 20220412
  Receipt Date: 20220412
  Transmission Date: 20220721
  Serious: No
  Sender: FDA-Public Use
  Company Number: US-009507513-2203USA004792

PATIENT
  Age: 77 Year
  Sex: Male

DRUGS (4)
  1. VERQUVO [Suspect]
     Active Substance: VERICIGUAT
     Indication: Myocardial infarction
     Dosage: 2.5 MG ONCE DAILY
     Route: 048
     Dates: start: 20220311
  2. VERQUVO [Suspect]
     Active Substance: VERICIGUAT
     Indication: Ejection fraction decreased
  3. VERQUVO [Suspect]
     Active Substance: VERICIGUAT
     Indication: Pulmonary oedema
  4. ENTRESTO [Concomitant]
     Active Substance: SACUBITRIL\VALSARTAN

REACTIONS (2)
  - Dizziness [Not Recovered/Not Resolved]
  - Hypotension [Not Recovered/Not Resolved]

NARRATIVE: CASE EVENT DATE: 20220301
